FAERS Safety Report 4351593-4 (Version None)
Quarter: 2004Q2

REPORT INFORMATION
  Report Type: 
  Country: None (occurrence: None)
  Receive Date: 20040503
  Receipt Date: 20040422
  Transmission Date: 20050107
  Serious: Yes (Other)
  Sender: FDA-Public Use
  Company Number: US-AMGEN-US073818

PATIENT
  Sex: Female

DRUGS (3)
  1. ENBREL [Suspect]
     Indication: RHEUMATOID ARTHRITIS
     Route: 058
     Dates: start: 20030305
  2. MOBIC [Concomitant]
     Dates: start: 20011219
  3. PLAQUENIL [Concomitant]
     Route: 048
     Dates: start: 20011003

REACTIONS (1)
  - BLOOD PRESSURE INCREASED [None]
